FAERS Safety Report 14124961 (Version 12)
Quarter: 2021Q3

REPORT INFORMATION
  Report Type: Report from Study
  Country: CO (occurrence: CO)
  Receive Date: 20171025
  Receipt Date: 20210729
  Transmission Date: 20211014
  Serious: Yes (Hospitalization, Other)
  Sender: FDA-Public Use
  Company Number: CO-ASTELLAS-2017US035813

PATIENT
  Age: 77 Year
  Sex: Male

DRUGS (5)
  1. IBANDRONIC ACID. [Concomitant]
     Active Substance: IBANDRONIC ACID
     Indication: BONE DISORDER
     Dosage: 6 MM IN 500 CC OF SALINE SOLUTION EVERY 28 DAYS
     Route: 065
     Dates: start: 2018
  2. LEUPROLIDE ACETATE. [Concomitant]
     Active Substance: LEUPROLIDE ACETATE
     Indication: UNEVALUABLE EVENT
     Dosage: 45 MG, EVERY 6 MONTHS?5 YEARS AGO
     Route: 058
  3. ENZALUTAMIDE [Suspect]
     Active Substance: ENZALUTAMIDE
     Indication: HORMONE-REFRACTORY PROSTATE CANCER
     Route: 048
     Dates: start: 20170221, end: 201804
  4. ENZALUTAMIDE [Suspect]
     Active Substance: ENZALUTAMIDE
     Route: 048
  5. LEUPROLIDE [Concomitant]
     Active Substance: LEUPROLIDE
     Indication: PRODUCT USED FOR UNKNOWN INDICATION
     Dosage: UNK UNK, EACH 6 MONTHS
     Route: 065

REACTIONS (36)
  - Arthralgia [Recovering/Resolving]
  - Dizziness [Not Recovered/Not Resolved]
  - Fatigue [Not Recovered/Not Resolved]
  - Prostatic specific antigen increased [Recovered/Resolved]
  - Dyspnoea [Recovered/Resolved]
  - Spinal compression fracture [Not Recovered/Not Resolved]
  - Prostatic specific antigen increased [Not Recovered/Not Resolved]
  - Discouragement [Recovering/Resolving]
  - Arthralgia [Recovering/Resolving]
  - Somnolence [Not Recovered/Not Resolved]
  - Ageusia [Unknown]
  - Nausea [Not Recovered/Not Resolved]
  - Fatigue [Not Recovered/Not Resolved]
  - Chest injury [Recovered/Resolved]
  - Spinal fracture [Not Recovered/Not Resolved]
  - Increased bronchial secretion [Recovered/Resolved]
  - Influenza [Recovered/Resolved]
  - Nephrolithiasis [Recovered/Resolved]
  - Vomiting [Not Recovered/Not Resolved]
  - Spinal column injury [Recovering/Resolving]
  - Bronchitis [Recovered/Resolved]
  - Cough [Recovered/Resolved]
  - Myalgia [Recovered/Resolved]
  - Drug ineffective [Not Recovered/Not Resolved]
  - Neck pain [Recovering/Resolving]
  - Inflammation [Recovered/Resolved]
  - Fall [Unknown]
  - Gait disturbance [Recovered/Resolved]
  - Vertigo [Recovered/Resolved]
  - Osteoporosis [Not Recovered/Not Resolved]
  - Product dose omission in error [Unknown]
  - Gallbladder rupture [Recovered/Resolved]
  - Decreased appetite [Not Recovered/Not Resolved]
  - Swelling [Recovered/Resolved]
  - Influenza [Recovered/Resolved]
  - Spinal compression fracture [Recovering/Resolving]

NARRATIVE: CASE EVENT DATE: 201704
